FAERS Safety Report 9498929 (Version 1)
Quarter: 2013Q3

REPORT INFORMATION
  Report Type: Spontaneous
  Country: US (occurrence: US)
  Receive Date: 20130904
  Receipt Date: 20130904
  Transmission Date: 20140515
  Serious: Yes (Congenital Anomaly, Other)
  Sender: FDA-Public Use
  Company Number: US-ELI_LILLY_AND_COMPANY-US201308008697

PATIENT
  Sex: 0

DRUGS (3)
  1. PROZAC [Suspect]
     Dosage: 20 MG, UNKNOWN
     Route: 064
  2. PROZAC [Suspect]
     Dosage: 40 MG, UNKNOWN
     Route: 064
  3. PROZAC [Suspect]
     Dosage: 30 MG, UNKNOWN
     Route: 064

REACTIONS (7)
  - Neonatal respiratory distress syndrome [Unknown]
  - Atrial septal defect [Unknown]
  - Bicuspid aortic valve [Unknown]
  - Aortic valve incompetence [Unknown]
  - Tricuspid valve incompetence [Unknown]
  - Congenital aortic stenosis [Unknown]
  - Foetal exposure during pregnancy [Unknown]
